FAERS Safety Report 5859397-8 (Version None)
Quarter: 2008Q3

REPORT INFORMATION
  Report Type: 
  Country: None (occurrence: None)
  Receive Date: 20080827
  Receipt Date: 20080821
  Transmission Date: 20090109
  Serious: Yes (Other)
  Sender: FDA-Public Use
  Company Number: US-ASTRAZENECA-2008UW17311

PATIENT
  Age: 46 Year
  Sex: Female

DRUGS (4)
  1. SEROQUEL [Suspect]
     Route: 048
  2. THYROXINE [Concomitant]
  3. PREVACID [Concomitant]
  4. NEXIUM [Concomitant]
     Route: 048

REACTIONS (2)
  - ERUCTATION [None]
  - WEIGHT INCREASED [None]
